FAERS Safety Report 6532920-6 (Version None)
Quarter: 2009Q4

REPORT INFORMATION
  Report Type: 
  Country: None (occurrence: None)
  Receive Date: 20091231
  Receipt Date: 20091217
  Transmission Date: 20100525
  Serious: Yes (Hospitalization)
  Sender: FDA-Public Use
  Company Number: AMAG200900081

PATIENT
  Age: 90 Year
  Sex: Female
  Weight: 50 kg

DRUGS (10)
  1. FERAHEME (FERUMOXYTOL) [Suspect]
     Indication: IRON DEFICIENCY ANAEMIA
     Dosage: 510 MG, SINGLE, INTRAVENOUS
     Route: 042
     Dates: start: 20091203, end: 20091203
  2. FERAHEME (FERUMOXYTOL) [Suspect]
     Indication: IRON DEFICIENCY ANAEMIA
     Dosage: 510 MG, SINGLE, INTRAVENOUS
     Route: 042
     Dates: start: 20091210, end: 20091210
  3. KAYEXALATE [Concomitant]
  4. TRAMADOL (TRAMADOL HVDROCHLORIDE) [Concomitant]
  5. CYANOCOBALAMIN [Concomitant]
  6. VITAMIN B6 [Concomitant]
  7. ASCORBIC ACID [Concomitant]
  8. VITAMIN E (TOCOPHERYL ACETATE) [Concomitant]
  9. AMLODIPINE [Concomitant]
  10. COLCHICINE (COLCHICINE) [Concomitant]

REACTIONS (1)
  - CARDIAC FAILURE CONGESTIVE [None]
